FAERS Safety Report 13428837 (Version 2)
Quarter: 2017Q2

REPORT INFORMATION
  Report Type: Report from Study
  Country: US (occurrence: US)
  Receive Date: 20170411
  Receipt Date: 20170505
  Transmission Date: 20170830
  Serious: Yes (Death, Other)
  Sender: FDA-Public Use
  Company Number: US-GILEAD-2017-0267255

PATIENT
  Age: 78 Year
  Sex: Male
  Weight: 66 kg

DRUGS (8)
  1. TADALAFIL [Concomitant]
     Active Substance: TADALAFIL
  2. MORPHINE [Concomitant]
     Active Substance: MORPHINE
  3. VITAMIN B12 [Concomitant]
     Active Substance: CYANOCOBALAMIN
  4. AMBRISENTAN [Suspect]
     Active Substance: AMBRISENTAN
     Indication: PULMONARY ARTERIAL HYPERTENSION
     Dosage: 10 MG, QD
     Route: 048
     Dates: start: 201601, end: 20170409
  5. REPAGLINIDE. [Concomitant]
     Active Substance: REPAGLINIDE
  6. ASPIRIN                            /00002701/ [Concomitant]
     Active Substance: ASPIRIN
  7. ALBUTEROL                          /00139501/ [Concomitant]
     Active Substance: ALBUTEROL
  8. ADCIRCA [Concomitant]
     Active Substance: TADALAFIL

REACTIONS (1)
  - Disease progression [Fatal]
